FAERS Safety Report 8941600 (Version 1)
Quarter: 2012Q4

REPORT INFORMATION
  Report Type: 
  Country: US (occurrence: US)
  Receive Date: 20121203
  Receipt Date: 20121203
  Transmission Date: 20130627
  Serious: No
  Sender: FDA-Public Use
  Company Number: US-BAYER-2012-125992

PATIENT
  Age: 92 Year
  Sex: Female
  Weight: 68.03 kg

DRUGS (4)
  1. ALEVE CAPLET/TABLET,MIDOL EXTENDED RELIEF CAPLET [Suspect]
     Indication: BACK ACHE
     Dosage: 1 DF, ONCE
     Route: 048
     Dates: start: 20121127
  2. BAYER ASPIRIN REGIMEN ADULT LOW STRENGTH [Concomitant]
     Indication: MYOCARDIAL INFARCT PROPHYLAXIS
  3. ALAPRIL [Concomitant]
  4. VITAMIN D [Concomitant]

REACTIONS (1)
  - Drug ineffective [None]
